FAERS Safety Report 7937326-0 (Version None)
Quarter: 2011Q4

REPORT INFORMATION
  Report Type: 
  Country: None (occurrence: None)
  Receive Date: 20111123
  Receipt Date: 20111115
  Transmission Date: 20120403
  Serious: Yes (Other)
  Sender: FDA-Public Use
  Company Number: US-ABBOTT-11P-163-0875157-00

PATIENT
  Age: 33 Year
  Sex: Female

DRUGS (5)
  1. DILANTIN [Concomitant]
     Indication: CONVULSION
     Dosage: CHEWABLE
     Dates: start: 20110901
  2. DILANTIN [Concomitant]
     Dosage: 1 TABLET IN AM AND 2 TABLET IN PM
  3. FOLIC ACID [Concomitant]
     Indication: PRODUCT USED FOR UNKNOWN INDICATION
     Dates: start: 20110808
  4. NEURONTIN [Concomitant]
     Indication: CONVULSION
     Dosage: 2 TABLETS IN AM AND 2 TABLETS IN PM
  5. HUMIRA [Suspect]
     Indication: PSORIASIS
     Dates: start: 20110101

REACTIONS (10)
  - HEADACHE [None]
  - RASH [None]
  - BLADDER PROLAPSE [None]
  - INCORRECT ROUTE OF DRUG ADMINISTRATION [None]
  - PARAESTHESIA [None]
  - PRURITUS [None]
  - TOXICITY TO VARIOUS AGENTS [None]
  - PAIN IN EXTREMITY [None]
  - RASH MACULAR [None]
  - CONVULSION [None]
